FAERS Safety Report 5330428-7 (Version None)
Quarter: 2007Q2

REPORT INFORMATION
  Report Type: 
  Country: None (occurrence: None)
  Receive Date: 20070521
  Receipt Date: 20070509
  Transmission Date: 20071010
  Serious: Yes (Other)
  Sender: FDA-Public Use
  Company Number: GB-PFIZER INC-2007037521

PATIENT

DRUGS (1)
  1. ISTIN [Suspect]
     Route: 048

REACTIONS (1)
  - OSTEOPENIA [None]
